FAERS Safety Report 17039458 (Version 2)
Quarter: 2019Q4

REPORT INFORMATION
  Report Type: Spontaneous
  Country: RO (occurrence: RO)
  Receive Date: 20191115
  Receipt Date: 20191226
  Transmission Date: 20200122
  Serious: No
  Sender: FDA-Public Use
  Company Number: RO-TOLMAR, INC.-19RO000925

PATIENT
  Sex: Male

DRUGS (1)
  1. ELIGARD [Suspect]
     Active Substance: LEUPROLIDE ACETATE
     Indication: PROSTATE CANCER
     Dosage: 22.5 MG Q 3 MONTHS
     Route: 065

REACTIONS (5)
  - Device leakage [None]
  - Wrong technique in product usage process [None]
  - Syringe issue [None]
  - Product physical consistency issue [None]
  - Intercepted product preparation error [None]

NARRATIVE: CASE EVENT DATE: 20191021
